FAERS Safety Report 5287905-7 (Version None)
Quarter: 2007Q2

REPORT INFORMATION
  Report Type: 
  Country: None (occurrence: None)
  Receive Date: 20070405
  Receipt Date: 20070329
  Transmission Date: 20071010
  Serious: Yes (Other)
  Sender: FDA-Public Use
  Company Number: TW-JNJFOC-20070307222

PATIENT
  Sex: Female

DRUGS (4)
  1. HALOPERIDOL [Suspect]
     Indication: PSYCHOTIC DISORDER
  2. BIPERIDEN HYDROCHLORIDE TAB [Concomitant]
  3. PROPRANOLOL [Concomitant]
  4. CLONAZEPAM [Concomitant]

REACTIONS (2)
  - AGITATION [None]
  - DYSPHASIA [None]
